FAERS Safety Report 5623668-0 (Version None)
Quarter: 2008Q1

REPORT INFORMATION
  Report Type: 
  Country: None (occurrence: None)
  Receive Date: 20080129
  Receipt Date: 20070511
  Transmission Date: 20080703
  Serious: Yes (Other)
  Sender: FDA-Public Use
  Company Number: WAES 0705USA03819

PATIENT
  Age: 80 Year
  Sex: Male
  Weight: 70.3075 kg

DRUGS (1)
  1. PRIMAXIN [Suspect]
     Indication: INFECTION
     Dosage: 250 MG/Q12H/IV
     Route: 042
     Dates: start: 20070411, end: 20070413

REACTIONS (1)
  - CONVULSION [None]
